FAERS Safety Report 19039637 (Version 1)
Quarter: 2021Q1

REPORT INFORMATION
  Report Type: Spontaneous
  Country: GB (occurrence: GB)
  Receive Date: 20210322
  Receipt Date: 20210322
  Transmission Date: 20210420
  Serious: Yes (Other)
  Sender: FDA-Public Use
  Company Number: GB-MYLANLABS-2021M1016627

PATIENT
  Sex: Female

DRUGS (12)
  1. CIPROFLOXACIN. [Suspect]
     Active Substance: CIPROFLOXACIN
     Indication: APLASTIC ANAEMIA
     Dosage: UNK
  2. CIPROFLOXACIN. [Interacting]
     Active Substance: CIPROFLOXACIN
     Indication: ENDOCARDITIS BACTERIAL
     Dosage: UNK
  3. RIFAMPIN. [Interacting]
     Active Substance: RIFAMPIN
     Indication: APLASTIC ANAEMIA
     Dosage: UNK
  4. FLUCONAZOLE. [Interacting]
     Active Substance: FLUCONAZOLE
     Indication: ENDOCARDITIS BACTERIAL
     Dosage: UNK
  5. CYCLOSPORINE. [Interacting]
     Active Substance: CYCLOSPORINE
     Indication: APLASTIC ANAEMIA
     Dosage: UNK
  6. DAPTOMYCIN. [Interacting]
     Active Substance: DAPTOMYCIN
     Indication: ENDOCARDITIS BACTERIAL
     Dosage: UNK
  7. FLUCONAZOLE. [Interacting]
     Active Substance: FLUCONAZOLE
     Indication: APLASTIC ANAEMIA
     Dosage: UNK
  8. RIFAMPIN. [Interacting]
     Active Substance: RIFAMPIN
     Indication: ENDOCARDITIS BACTERIAL
     Dosage: UNK
  9. CUBICIN [Interacting]
     Active Substance: DAPTOMYCIN
     Indication: APLASTIC ANAEMIA
     Dosage: UNK
  10. CYCLOSPORINE. [Interacting]
     Active Substance: CYCLOSPORINE
     Indication: ENDOCARDITIS BACTERIAL
     Dosage: UNK
  11. DAPTOMYCIN. [Interacting]
     Active Substance: DAPTOMYCIN
     Indication: APLASTIC ANAEMIA
     Dosage: UNK
  12. CUBICIN [Interacting]
     Active Substance: DAPTOMYCIN
     Indication: ENDOCARDITIS BACTERIAL
     Dosage: UNK

REACTIONS (1)
  - Drug interaction [Unknown]
